FAERS Safety Report 11982360 (Version 4)
Quarter: 2016Q2

REPORT INFORMATION
  Report Type: Spontaneous
  Country: IT (occurrence: IT)
  Receive Date: 20160201
  Receipt Date: 20160507
  Transmission Date: 20160815
  Serious: Yes (Other)
  Sender: FDA-Public Use
  Company Number: IT-ACCORD-037272

PATIENT
  Age: 67 Year
  Sex: Male
  Weight: 61 kg

DRUGS (8)
  1. MOTILEX [Concomitant]
     Dosage: 1 DF
     Route: 048
  2. LEDERFOLIN PFIZER [Suspect]
     Active Substance: LEUCOVORIN CALCIUM
     Indication: OESOPHAGEAL CARCINOMA
     Dosage: FOLFOX CYCLE 4: 260 MG?CYCLE 1: 330 MG
     Route: 042
     Dates: start: 20150907
  3. CREON [Concomitant]
     Active Substance: PANCRELIPASE AMYLASE\PANCRELIPASE LIPASE\PANCRELIPASE PROTEASE
     Indication: PANCREATITIS CHRONIC
     Dosage: 2 DF; STRENGTH: 10.000 U.PH.EUR.?MODIFIED-RELEASE CAPSULES
     Route: 048
  4. SOLOSA [Concomitant]
     Active Substance: GLIMEPIRIDE
     Indication: TYPE 2 DIABETES MELLITUS
     Dosage: 1 DF?STRENGTH: 2 MG
     Route: 048
  5. ESOMEPRAZOLE [Concomitant]
     Active Substance: ESOMEPRAZOLE
     Dosage: 40 MG
     Route: 048
  6. OXALIPLATIN. [Suspect]
     Active Substance: OXALIPLATIN
     Indication: OESOPHAGEAL CARCINOMA
     Dosage: FOLFOX CYCLE 4;?CYCLE 1: 140 MG
     Route: 042
     Dates: start: 20150907
  7. INDAPAMIDE/PERINDOPRIL [Concomitant]
     Indication: HYPERTENSION
     Dosage: 1 DF
     Route: 048
  8. FLUOROURACIL. [Suspect]
     Active Substance: FLUOROURACIL
     Indication: OESOPHAGEAL CARCINOMA
     Dosage: FOLFOX CYCLE 4;?ALSO RECEIVED FROM 07-SEP-2015 TO 14-DEC-2015 AT 2680 MG CYCLICAL INTRAVENOUSLY
     Route: 040
     Dates: start: 20150907

REACTIONS (5)
  - Bronchitis [Recovering/Resolving]
  - Oedema peripheral [Recovering/Resolving]
  - Anaemia [Recovering/Resolving]
  - Neutropenia [Recovering/Resolving]
  - Off label use [Unknown]

NARRATIVE: CASE EVENT DATE: 20150930
